FAERS Safety Report 15887524 (Version 1)
Quarter: 2019Q1

REPORT INFORMATION
  Report Type: Spontaneous
  Country: FR (occurrence: FR)
  Receive Date: 20190130
  Receipt Date: 20190130
  Transmission Date: 20190417
  Serious: Yes (Hospitalization)
  Sender: FDA-Public Use
  Company Number: FR-ACCORD-103815

PATIENT
  Age: 83 Year
  Sex: Female
  Weight: 60 kg

DRUGS (10)
  1. FUROSEMIDE. [Concomitant]
     Active Substance: FUROSEMIDE
  2. ALPRAZOLAM. [Concomitant]
     Active Substance: ALPRAZOLAM
  3. POTASSIUM [Concomitant]
     Active Substance: POTASSIUM
  4. MIDODRINE [Suspect]
     Active Substance: MIDODRINE
     Indication: ORTHOSTATIC HYPOTENSION
     Route: 048
     Dates: start: 201802
  5. LEVOTHYROXINE. [Concomitant]
     Active Substance: LEVOTHYROXINE
  6. FLUINDIONE [Concomitant]
     Active Substance: FLUINDIONE
  7. ALLOPURINOL. [Suspect]
     Active Substance: ALLOPURINOL
     Indication: HYPERURICAEMIA
     Route: 048
     Dates: start: 2016, end: 20180321
  8. BISOPROLOL [Concomitant]
     Active Substance: BISOPROLOL
  9. ZOPICLONE [Concomitant]
     Active Substance: ZOPICLONE
  10. CORDARONE [Suspect]
     Active Substance: AMIODARONE HYDROCHLORIDE
     Indication: ATRIAL FIBRILLATION
     Dosage: 1/2 TABLET DAILY
     Route: 048
     Dates: start: 201611, end: 20180321

REACTIONS (6)
  - Toxic skin eruption [Recovering/Resolving]
  - Enanthema [Recovering/Resolving]
  - Erythema [Recovering/Resolving]
  - Keratitis [Recovering/Resolving]
  - Pruritus [Recovering/Resolving]
  - Blister [Recovering/Resolving]

NARRATIVE: CASE EVENT DATE: 20180313
